FAERS Safety Report 12090147 (Version 1)
Quarter: 2016Q1

REPORT INFORMATION
  Report Type: Spontaneous
  Country: US (occurrence: US)
  Receive Date: 20160218
  Receipt Date: 20160218
  Transmission Date: 20160526
  Serious: Yes (Other)
  Sender: FDA-Public Use
  Company Number: US-CELGENE-USA-2016021554

PATIENT
  Sex: Female
  Weight: 68.1 kg

DRUGS (1)
  1. THALOMID [Suspect]
     Active Substance: THALIDOMIDE
     Indication: CASTLEMAN^S DISEASE
     Dosage: 100 MILLIGRAM
     Route: 048
     Dates: start: 20150917

REACTIONS (1)
  - Incontinence [Unknown]
